FAERS Safety Report 5285314-8 (Version None)
Quarter: 2007Q1

REPORT INFORMATION
  Report Type: 
  Country: None (occurrence: None)
  Receive Date: 20061229
  Receipt Date: 20060911
  Transmission Date: 20070707
  Serious: Yes (Hospitalization)
  Sender: FDA-Public Use
  Company Number: 2006UW17827

PATIENT
  Sex: Female

DRUGS (11)
  1. CRESTOR [Suspect]
     Dosage: 10 MG DAILY PO
     Route: 048
  2. TRICOR [Suspect]
     Dosage: 160 M DAILY
  3. AVANDIA [Suspect]
     Dosage: 4 DF DAILY
  4. PLAVIX [Concomitant]
  5. DYERNIUM [Concomitant]
  6. DILTIAZEM [Concomitant]
  7. POTASSIUM CHLORIDE [Concomitant]
  8. PACERONE [Concomitant]
  9. LORAZEPAM [Concomitant]
  10. MICARDIS [Concomitant]
  11. PREDNISONE TAB [Concomitant]

REACTIONS (1)
  - PANCREATITIS [None]
